FAERS Safety Report 8732497 (Version 2)
Quarter: 2012Q4

REPORT INFORMATION
  Report Type: Report from Study
  Country: PL (occurrence: PL)
  Receive Date: 20120820
  Receipt Date: 20120921
  Transmission Date: 20130627
  Serious: Yes (Other)
  Sender: FDA-Public Use
  Company Number: PL-ROCHE-1099557

PATIENT

DRUGS (1)
  1. AVASTIN [Suspect]
     Indication: LARGE INTESTINE CARCINOMA

REACTIONS (2)
  - Bone marrow failure [Unknown]
  - Hypertension [Unknown]
